FAERS Safety Report 7876893-2 (Version None)
Quarter: 2011Q4

REPORT INFORMATION
  Report Type: 
  Country: None (occurrence: None)
  Receive Date: 20111031
  Receipt Date: 20100825
  Transmission Date: 20120403
  Serious: No
  Sender: FDA-Public Use
  Company Number: US-BAYER-201032023NA

PATIENT
  Age: 65 Year
  Sex: Male
  Weight: 81.633 kg

DRUGS (2)
  1. ULTRAVIST 240 [Suspect]
     Indication: HAEMATURIA
  2. ULTRAVIST 240 [Suspect]
     Indication: COMPUTERISED TOMOGRAM
     Dosage: 185 ML, ONCE
     Route: 042
     Dates: start: 20100825, end: 20100825

REACTIONS (2)
  - CHILLS [None]
  - DIZZINESS [None]
